FAERS Safety Report 7717654-4 (Version None)
Quarter: 2011Q3

REPORT INFORMATION
  Report Type: 
  Country: None (occurrence: None)
  Receive Date: 20110830
  Receipt Date: 20110823
  Transmission Date: 20111222
  Serious: Yes (Hospitalization, Other)
  Sender: FDA-Public Use
  Company Number: FR-BRISTOL-MYERS SQUIBB COMPANY-15997950

PATIENT
  Age: 43 Year
  Sex: Female

DRUGS (1)
  1. TAXOL [Suspect]
     Indication: BREAST CANCER METASTATIC
     Dosage: 1 DF= 1 INJ. 2ND INFUSION: 3AUG11.
     Dates: start: 20110727

REACTIONS (4)
  - BONE MARROW FAILURE [None]
  - WEIGHT DECREASED [None]
  - APHONIA [None]
  - COUGH [None]
